FAERS Safety Report 6338068-8 (Version None)
Quarter: 2009Q3

REPORT INFORMATION
  Report Type: 
  Country: None (occurrence: None)
  Receive Date: 20090902
  Receipt Date: 20090824
  Transmission Date: 20100115
  Serious: Yes (Other)
  Sender: FDA-Public Use
  Company Number: PHHY2009JP35315

PATIENT

DRUGS (1)
  1. LAMISIL [Suspect]
     Dosage: 125 MG, QD
     Route: 048

REACTIONS (2)
  - CHROMATURIA [None]
  - MYOGLOBIN BLOOD INCREASED [None]
